FAERS Safety Report 5482661-1 (Version None)
Quarter: 2007Q4

REPORT INFORMATION
  Report Type: 
  Country: None (occurrence: None)
  Receive Date: 20071011
  Receipt Date: 20070928
  Transmission Date: 20080405
  Serious: Yes (Hospitalization)
  Sender: FDA-Public Use
  Company Number: IT-ELI_LILLY_AND_COMPANY-IT200706003390

PATIENT
  Sex: Female

DRUGS (6)
  1. FORTEO [Suspect]
     Indication: OSTEOPOROSIS
     Dosage: 20 UG, DAILY (1/D)
     Route: 058
     Dates: start: 20070315, end: 20070620
  2. CALCIUM [Concomitant]
  3. CARDIRENE [Concomitant]
     Indication: ANTIPLATELET THERAPY
  4. LUCEN [Concomitant]
     Indication: PROPHYLAXIS
  5. VENORUTON [Concomitant]
  6. OPTINATE [Concomitant]
     Dosage: UNK, UNKNOWN
     Route: 065

REACTIONS (1)
  - IRON DEFICIENCY ANAEMIA [None]
